FAERS Safety Report 18690459 (Version 1)
Quarter: 2020Q4

REPORT INFORMATION
  Report Type: Spontaneous
  Country: US (occurrence: US)
  Receive Date: 20201231
  Receipt Date: 20201231
  Transmission Date: 20210114
  Serious: Yes (Other)
  Sender: FDA-Public Use
  Company Number: US-LUPIN PHARMACEUTICALS INC.-2020-06465

PATIENT
  Age: 50 Year
  Sex: Male

DRUGS (4)
  1. RIFABUTIN. [Suspect]
     Active Substance: RIFABUTIN
     Indication: ATYPICAL MYCOBACTERIAL INFECTION
  2. ETHAMBUTOL [Suspect]
     Active Substance: ETHAMBUTOL HYDROCHLORIDE
     Indication: OSTEOMYELITIS BACTERIAL
  3. RIFABUTIN. [Suspect]
     Active Substance: RIFABUTIN
     Indication: OSTEOMYELITIS BACTERIAL
     Dosage: 300 MILLIGRAM, QD
     Route: 065
  4. ETHAMBUTOL [Suspect]
     Active Substance: ETHAMBUTOL HYDROCHLORIDE
     Indication: ATYPICAL MYCOBACTERIAL INFECTION
     Dosage: 1000 MILLIGRAM, QD
     Route: 065

REACTIONS (1)
  - Neutropenia [Unknown]
